FAERS Safety Report 5231377-5 (Version None)
Quarter: 2007Q1

REPORT INFORMATION
  Report Type: 
  Country: None (occurrence: None)
  Receive Date: 20070206
  Receipt Date: 20070126
  Transmission Date: 20070707
  Serious: Yes (Other)
  Sender: FDA-Public Use
  Company Number: US-ROCHE-480015

PATIENT
  Sex: Female

DRUGS (3)
  1. FUZEON [Suspect]
     Indication: DRUG USE FOR UNKNOWN INDICATION
     Dosage: AT THE TIME OF THE REPORT, THE PATIENT REPORTED SHE HAD BEEN ON THERAPY FOR ABOUT 6 WEEKS.
     Route: 065
  2. NORVIR [Concomitant]
  3. 1 CONCOMITANT DRUG [Concomitant]
     Dosage: PATIENT REPORTED NAME AS PRAZISTA.

REACTIONS (5)
  - DYSPNOEA EXERTIONAL [None]
  - HYPERTENSION [None]
  - NAUSEA [None]
  - OEDEMA PERIPHERAL [None]
  - PYREXIA [None]
